FAERS Safety Report 23166804 (Version 1)
Quarter: 2023Q4

REPORT INFORMATION
  Report Type: Spontaneous
  Country: US (occurrence: US)
  Receive Date: 20231109
  Receipt Date: 20231109
  Transmission Date: 20240109
  Serious: No
  Sender: FDA-Public Use
  Company Number: US-SANDOZ-NVSC2023US097181

PATIENT
  Sex: Male
  Weight: 100.23 kg

DRUGS (6)
  1. CHLORTHALIDONE [Suspect]
     Active Substance: CHLORTHALIDONE
     Indication: Hypertension
     Dosage: 25 MG, QD
     Route: 048
  2. COSENTYX [Suspect]
     Active Substance: SECUKINUMAB
     Indication: Product used for unknown indication
     Dosage: UNK ROUTE OF ADMIN (FREE TEXT): INJECTION NOT OTHERWISE SPECIFIED
     Route: 065
  3. LOSARTAN [Suspect]
     Active Substance: LOSARTAN
     Indication: Hypertension
     Dosage: 100 MG, QD
     Route: 048
  4. NITROGLYCERIN [Suspect]
     Active Substance: NITROGLYCERIN
     Indication: Product used for unknown indication
     Dosage: 20 MG, PRN (SUBLINGUAL)
     Route: 048
  5. PREDNISONE [Suspect]
     Active Substance: PREDNISONE
     Indication: Psoriatic arthropathy
     Dosage: 20 MG, OTHER ( 2 TABS Q AM X 5 D, 1.5 TAB Q AM, 1 TAB Q AM X 5 D, 0.5 TAB Q AM X 21 D)
     Route: 048
  6. PREDNISONE [Suspect]
     Active Substance: PREDNISONE
     Indication: Psoriasis

REACTIONS (8)
  - Musculoskeletal stiffness [Not Recovered/Not Resolved]
  - Tendonitis [Unknown]
  - Joint stiffness [Unknown]
  - Bone erosion [Unknown]
  - Back pain [Unknown]
  - Joint swelling [Unknown]
  - Swelling face [Unknown]
  - Toothache [Unknown]
